FAERS Safety Report 8836657 (Version 1)
Quarter: 2012Q4

REPORT INFORMATION
  Report Type: Spontaneous
  Country: IE (occurrence: None)
  Receive Date: 20121010
  Receipt Date: 20121010
  Transmission Date: 20130627
  Serious: Yes (Other)
  Sender: FDA-Public Use
  Company Number: FK201202951

PATIENT
  Age: 66 Year
  Sex: Male

DRUGS (1)
  1. PIPERACILLIN SODIUM\TAZOBACTAM SODIUM [Suspect]
     Indication: INFECTION
     Route: 042
     Dates: start: 20120705, end: 20120705

REACTIONS (4)
  - Tachycardia [None]
  - Agitation [None]
  - Oxygen saturation decreased [None]
  - Drug hypersensitivity [None]
